FAERS Safety Report 21233403 (Version 1)
Quarter: 2022Q3

REPORT INFORMATION
  Report Type: Spontaneous
  Country: US (occurrence: US)
  Receive Date: 20220819
  Receipt Date: 20220819
  Transmission Date: 20221027
  Serious: Yes (Other)
  Sender: FDA-Public Use
  Company Number: US-PFIZER INC-PV202200043862

PATIENT
  Age: 66 Year
  Sex: Female

DRUGS (1)
  1. XELJANZ [Suspect]
     Active Substance: TOFACITINIB CITRATE
     Indication: Alopecia
     Dosage: UNK

REACTIONS (6)
  - Autoimmune disorder [Unknown]
  - Off label use [Unknown]
  - Drug ineffective [Unknown]
  - Pain [Unknown]
  - Alopecia [Unknown]
  - Migraine [Unknown]
